FAERS Safety Report 11719220 (Version 2)
Quarter: 2016Q1

REPORT INFORMATION
  Report Type: Report from Study
  Country: US (occurrence: US)
  Receive Date: 20151110
  Receipt Date: 20160210
  Transmission Date: 20160525
  Serious: No
  Sender: FDA-Public Use
  Company Number: US-VANDA PHARMACEUTICALS, INC-2015TASUS000958

PATIENT
  Age: 57 Year
  Sex: Female
  Weight: 83.45 kg

DRUGS (1)
  1. HETLIOZ [Suspect]
     Active Substance: TASIMELTEON
     Indication: CIRCADIAN RHYTHM SLEEP DISORDER
     Dosage: 20 MG, DAILY
     Route: 048
     Dates: start: 201509, end: 2015

REACTIONS (4)
  - Headache [Recovered/Resolved]
  - Insomnia [Unknown]
  - Nightmare [Unknown]
  - Flank pain [Unknown]

NARRATIVE: CASE EVENT DATE: 2015
